FAERS Safety Report 14977350 (Version 2)
Quarter: 2018Q2

REPORT INFORMATION
  Report Type: Spontaneous
  Country: US (occurrence: US)
  Receive Date: 20180606
  Receipt Date: 20180611
  Transmission Date: 20180711
  Serious: No
  Sender: FDA-Public Use
  Company Number: US-B.I. PHARMACEUTICALS,INC./RIDGEFIELD-2018-BI-028771

PATIENT
  Sex: Female

DRUGS (7)
  1. COMBIVENT [Suspect]
     Active Substance: ALBUTEROL SULFATE\IPRATROPIUM BROMIDE
     Dosage: FORM STRENGTH: 20 MCG / 100 MCG;  ACTION(S) TAKEN WITH PRODUCT: DOSE INCREASED
     Route: 055
     Dates: start: 201711, end: 201712
  2. COMBIVENT [Suspect]
     Active Substance: ALBUTEROL SULFATE\IPRATROPIUM BROMIDE
     Dosage: STRENGTH: 20 MCG / 100 MCG; ACTION(S) TAKEN WITH PRODUCT: DRUG REDUCED
     Route: 055
     Dates: start: 201712, end: 201804
  3. DEXILANT [Concomitant]
     Active Substance: DEXLANSOPRAZOLE
     Indication: DYSPEPSIA
  4. COMBIVENT [Suspect]
     Active Substance: ALBUTEROL SULFATE\IPRATROPIUM BROMIDE
     Indication: ASTHMA
     Dosage: STRENGTH: 20 MCG / 100 MCG  ACTION(S) TAKEN WITH PRODUCT: DRUG REDUCED
     Route: 055
     Dates: start: 2013, end: 201711
  5. COMBIVENT [Suspect]
     Active Substance: ALBUTEROL SULFATE\IPRATROPIUM BROMIDE
     Dosage: FORM STRENGTH: 20 MCG / 100 MCG; ACTION(S) TAKEN WITH PRODUCT: DOSE NOT CHANGED
     Route: 055
     Dates: start: 201804
  6. DEXILANT [Concomitant]
     Active Substance: DEXLANSOPRAZOLE
     Indication: GASTROOESOPHAGEAL REFLUX DISEASE
     Dosage: ONE CAPSULE TWICE A DAY;  FORM STRENGTH: 60 MG; FORMULATION: CAPSULE
     Route: 048
  7. TRAMADAL [Concomitant]
     Indication: SPINAL PAIN
     Route: 048

REACTIONS (4)
  - Off label use [Unknown]
  - Product use issue [Unknown]
  - Therapeutic response unexpected [Not Recovered/Not Resolved]
  - Atrial fibrillation [Not Recovered/Not Resolved]

NARRATIVE: CASE EVENT DATE: 2013
